FAERS Safety Report 5065271-X (Version None)
Quarter: 2006Q3

REPORT INFORMATION
  Report Type: 
  Country: None (occurrence: None)
  Receive Date: 20060707
  Receipt Date: 20050701
  Transmission Date: 20061208
  Serious: Yes (Hospitalization)
  Sender: FDA-Public Use
  Company Number: SUS1-2005-00544

PATIENT
  Age: 42 Year
  Sex: Male

DRUGS (5)
  1. PENTASA [Suspect]
     Indication: COLITIS ULCERATIVE
     Dosage: 2250 MG DAILY, ORAL
     Route: 048
     Dates: start: 20040109, end: 20050528
  2. PENTASA [Suspect]
     Indication: COLITIS ULCERATIVE
     Dosage: 1 G DAILY, RECTAL
     Route: 054
     Dates: start: 20050224, end: 20050428
  3. RABEPRAZOLE SODIUM [Concomitant]
  4. TEPRENONE (TEPRENONE) [Concomitant]
  5. SULFASALAZINE [Concomitant]

REACTIONS (1)
  - PANCREATITIS [None]
